FAERS Safety Report 16237495 (Version 1)
Quarter: 2019Q2

REPORT INFORMATION
  Report Type: Spontaneous
  Country: US (occurrence: US)
  Receive Date: 20190425
  Receipt Date: 20190425
  Transmission Date: 20190711
  Serious: Yes (Life-Threatening, Hospitalization, Other)
  Sender: FDA-Public Use
  Company Number: US-HIKMA PHARMACEUTICALS USA INC.-US-H14001-19-02694

PATIENT
  Age: 8 Decade
  Sex: Male

DRUGS (2)
  1. FLECAINIDE [Suspect]
     Active Substance: FLECAINIDE
     Route: 065
  2. FLECAINIDE [Suspect]
     Active Substance: FLECAINIDE
     Indication: ATRIAL FIBRILLATION
     Route: 065

REACTIONS (6)
  - Toxicity to various agents [Recovering/Resolving]
  - Drug level increased [Unknown]
  - Bifascicular block [Recovered/Resolved]
  - Tachycardia [Recovering/Resolving]
  - Cardiac failure congestive [Recovering/Resolving]
  - Systolic dysfunction [Recovering/Resolving]
